FAERS Safety Report 7105493-7 (Version None)
Quarter: 2010Q4

REPORT INFORMATION
  Report Type: 
  Country: None (occurrence: None)
  Receive Date: 20101116
  Receipt Date: 20101109
  Transmission Date: 20110411
  Serious: Yes (Other)
  Sender: FDA-Public Use
  Company Number: US-ROCHE-698068

PATIENT
  Sex: Male
  Weight: 83.9 kg

DRUGS (8)
  1. ACCUTANE [Suspect]
     Route: 065
     Dates: start: 20040114, end: 20040605
  2. ACCUTANE [Suspect]
     Route: 065
     Dates: start: 20050414
  3. AMNESTEEM [Suspect]
     Route: 048
     Dates: start: 20040601, end: 20041001
  4. AMNESTEEM [Suspect]
     Dosage: FREQUENCY: BID/ OD FOR ALTERNATE DAYS
     Route: 048
     Dates: start: 20041201
  5. AMNESTEEM [Suspect]
     Dosage: 40 MG ALTERNATING WITH 80 MG EVERY OTHER DAY, INCREASE TO 40 MG BID AS TOLERATED.
     Route: 048
     Dates: start: 20050317, end: 20050601
  6. MINOCYCLINE HCL [Concomitant]
     Indication: ACNE
  7. COTRIM [Concomitant]
     Indication: ACNE
  8. KEFLEX [Concomitant]
     Dates: start: 20050517

REACTIONS (5)
  - ANXIETY [None]
  - BLOOD TRIGLYCERIDES INCREASED [None]
  - COLITIS [None]
  - COLITIS ULCERATIVE [None]
  - INFLAMMATORY BOWEL DISEASE [None]
